FAERS Safety Report 5941790-6 (Version None)
Quarter: 2008Q4

REPORT INFORMATION
  Report Type: 
  Country: None (occurrence: None)
  Receive Date: 20081105
  Receipt Date: 20081029
  Transmission Date: 20090506
  Serious: Yes (Disabling)
  Sender: FDA-Public Use
  Company Number: PHHY2008FR26777

PATIENT
  Age: 48 Year
  Sex: Female

DRUGS (6)
  1. STALEVO 100 [Suspect]
     Dosage: 50MG/12.5MG/200MG TABLETS, 3 TABLETS/ DAY
     Route: 048
     Dates: start: 20080201
  2. ORENCIA [Interacting]
     Indication: RHEUMATOID ARTHRITIS
     Dosage: 1 DF, QMO
  3. MODOPAR [Concomitant]
     Dosage: 125 MG, BID
     Route: 048
  4. TRIVASTAL [Concomitant]
     Dosage: 6 TABLETS/DAY
     Route: 048
  5. SOTALEX [Concomitant]
     Dosage: UNK
  6. LEVOTHYROX [Concomitant]
     Dosage: UNK

REACTIONS (2)
  - DRUG INTERACTION [None]
  - DYSKINESIA [None]
